FAERS Safety Report 20713891 (Version 1)
Quarter: 2022Q2

REPORT INFORMATION
  Report Type: Spontaneous
  Country: HU (occurrence: HU)
  Receive Date: 20220415
  Receipt Date: 20220415
  Transmission Date: 20220720
  Serious: Yes (Other)
  Sender: FDA-Public Use
  Company Number: HU-SUN PHARMACEUTICAL INDUSTRIES LTD-2022R1-332754

PATIENT
  Age: 35 Year
  Sex: Female

DRUGS (6)
  1. METHYLDOPA [Suspect]
     Active Substance: METHYLDOPA
     Indication: Hypertension
     Dosage: UNK(3 X 125 MG PER OS)
     Route: 048
  2. METHYLDOPA [Suspect]
     Active Substance: METHYLDOPA
     Dosage: UNK (3 X 250 MG)
     Route: 048
  3. TACROLIMUS [Suspect]
     Active Substance: TACROLIMUS
     Indication: Immunosuppression
     Dosage: UNK (6 MG)
     Route: 065
  4. TACROLIMUS [Suspect]
     Active Substance: TACROLIMUS
     Dosage: UNK (15 MG)
     Route: 065
  5. DIHYDRALAZINE [Suspect]
     Active Substance: DIHYDRALAZINE
     Indication: Hypertension
     Dosage: UNK (3 X 25 MG)
     Route: 065
  6. MAGNESIUM SULFATE [Suspect]
     Active Substance: MAGNESIUM SULFATE
     Indication: Hypertension
     Dosage: UNK
     Route: 042

REACTIONS (6)
  - Exposure during pregnancy [Unknown]
  - Therapeutic product effect incomplete [Unknown]
  - Blood creatinine increased [Unknown]
  - Oedema [Unknown]
  - Proteinuria [Unknown]
  - Live birth [Unknown]
